FAERS Safety Report 17844632 (Version 1)
Quarter: 2020Q2

REPORT INFORMATION
  Report Type: Spontaneous
  Country: US (occurrence: US)
  Receive Date: 20200601
  Receipt Date: 20200601
  Transmission Date: 20200714
  Serious: No
  Sender: FDA-Public Use
  Company Number: US-BAUSCH-BL-2020-010332

PATIENT
  Sex: Male
  Weight: 63.56 kg

DRUGS (3)
  1. JUBLIA [Suspect]
     Active Substance: EFINACONAZOLE
     Indication: ILL-DEFINED DISORDER
     Dosage: STARTED ON AN UNKNOWN DATE COUPLE OF YEARS AGO AND STOPPED USING IT ON AN UNKNOWN DATE (YEARS AGO).
     Route: 061
     Dates: start: 2018
  2. ALBUTEROL. [Concomitant]
     Active Substance: ALBUTEROL
     Indication: ASTHMA
     Dosage: STARTED AT 5 YEARS AT TIME OF FOLLOW UP REPORT
     Dates: start: 2015
  3. GENERIC JUBLIA [Suspect]
     Active Substance: EFINACONAZOLE
     Indication: ILL-DEFINED DISORDER
     Route: 065
     Dates: end: 2019

REACTIONS (4)
  - Nail discolouration [Unknown]
  - Product substitution issue [Unknown]
  - Insurance issue [Unknown]
  - Nail disorder [Unknown]
